FAERS Safety Report 10023796 (Version 2)
Quarter: 2014Q1

REPORT INFORMATION
  Report Type: Spontaneous
  Country: US (occurrence: US)
  Receive Date: 20140320
  Receipt Date: 20140320
  Transmission Date: 20141002
  Serious: Yes (Disabling)
  Sender: FDA-Public Use
  Company Number: US-GE HEALTHCARE MEDICAL DIAGNOSTICS-OSCN-PR-0811S-0618

PATIENT
  Age: 43 Year
  Sex: Female

DRUGS (6)
  1. OMNISCAN [Suspect]
     Indication: ABDOMINAL PAIN
     Route: 042
     Dates: start: 20031202, end: 20031202
  2. OMNISCAN [Suspect]
     Indication: PAIN IN EXTREMITY
     Route: 042
     Dates: start: 20050413, end: 20050413
  3. GADOLINIUM (UNSPECIFIED) [Suspect]
     Indication: PRODUCT USED FOR UNKNOWN INDICATION
     Route: 042
     Dates: start: 1993, end: 1993
  4. OPTIMARK [Suspect]
     Indication: MASS
     Route: 042
     Dates: start: 20041005, end: 20041005
  5. OPTIMARK [Suspect]
     Indication: PAIN IN EXTREMITY
     Route: 042
     Dates: start: 20050125, end: 20050125
  6. OPTIMARK [Suspect]
     Route: 042
     Dates: start: 20060829, end: 20060829

REACTIONS (1)
  - Nephrogenic systemic fibrosis [Not Recovered/Not Resolved]
